FAERS Safety Report 13113068 (Version 2)
Quarter: 2017Q1

REPORT INFORMATION
  Report Type: Spontaneous
  Country: US (occurrence: US)
  Receive Date: 20170113
  Receipt Date: 20170127
  Transmission Date: 20170428
  Serious: Yes (Hospitalization, Other)
  Sender: FDA-Public Use
  Company Number: US-SAOL THERAPEUTICS-2017SAO00044

PATIENT
  Sex: Male

DRUGS (1)
  1. BACLOFEN. [Suspect]
     Active Substance: BACLOFEN
     Indication: MUSCLE SPASTICITY
     Dosage: 296 ?G, \DAY
     Route: 037
     Dates: start: 1996

REACTIONS (3)
  - Decubitus ulcer [Unknown]
  - Osteomyelitis [Recovered/Resolved]
  - Sepsis [Recovered/Resolved]
